FAERS Safety Report 13834260 (Version 3)
Quarter: 2017Q4

REPORT INFORMATION
  Report Type: Spontaneous
  Country: US (occurrence: US)
  Receive Date: 20170804
  Receipt Date: 20171120
  Transmission Date: 20180320
  Serious: No
  Sender: FDA-Public Use
  Company Number: US-PFIZER INC-2017334503

PATIENT
  Age: 73 Year
  Sex: Female

DRUGS (6)
  1. IBRANCE [Suspect]
     Active Substance: PALBOCICLIB
     Indication: BREAST CANCER FEMALE
     Dosage: 75 MG, CYCLIC (ONCE DAILY WITH FOOD 21 DAYS, THEN 7 DAYS OFF REPEAT CYCLE EVERY 4 WEEKS)
     Route: 048
     Dates: start: 20170727
  2. IBRANCE [Suspect]
     Active Substance: PALBOCICLIB
     Dosage: 75 MG, UNK
     Dates: start: 20170728
  3. TYLENOL [Concomitant]
     Active Substance: ACETAMINOPHEN
     Dosage: 325 MG, UNK
  4. IBRANCE [Suspect]
     Active Substance: PALBOCICLIB
     Dosage: 75 MG, CYCLIC, (ONCE DAILY WITH FOOD FOR 21 DAYS, THEN 7 DAYS OFF REPEAT CYCLE EVERY 4 WEEKS)
     Route: 048
  5. FASLODEX [Suspect]
     Active Substance: FULVESTRANT
     Dosage: UNK
  6. LOSARTAN POTASSIUM. [Concomitant]
     Active Substance: LOSARTAN POTASSIUM
     Dosage: 100 MG, UNK

REACTIONS (5)
  - Nausea [Not Recovered/Not Resolved]
  - Peripheral coldness [Unknown]
  - Decreased appetite [Not Recovered/Not Resolved]
  - Fatigue [Not Recovered/Not Resolved]
  - Asthenia [Not Recovered/Not Resolved]
